FAERS Safety Report 7377899-2 (Version None)
Quarter: 2011Q1

REPORT INFORMATION
  Report Type: 
  Country: None (occurrence: None)
  Receive Date: 20110328
  Receipt Date: 20110314
  Transmission Date: 20110831
  Serious: Yes (Life-Threatening, Hospitalization, Other)
  Sender: FDA-Public Use
  Company Number: US-ACTELION-A-US2011-46327

PATIENT

DRUGS (13)
  1. LORAZEPAM [Concomitant]
  2. TRACLEER [Suspect]
     Indication: PULMONARY ARTERIAL HYPERTENSION
     Dosage: 62.5 MG, BID
     Route: 048
     Dates: start: 20050312, end: 20090620
  3. CARVEDILOL [Concomitant]
  4. LASIX [Concomitant]
  5. ASPIRIN [Concomitant]
  6. VICODIN [Concomitant]
  7. OXYGEN [Concomitant]
  8. PREDNISONE [Concomitant]
  9. REVATIO [Concomitant]
  10. ZEGERID [Concomitant]
  11. TRACLEER [Suspect]
     Dosage: 125 MG, BID
     Route: 048
     Dates: start: 20090620
  12. FOLIC ACID [Concomitant]
  13. VITAMIN D [Concomitant]

REACTIONS (6)
  - PNEUMONIA [None]
  - PLEURAL ADHESION [None]
  - THROMBOSIS [None]
  - RHEUMATOID LUNG [None]
  - RESPIRATORY FAILURE [None]
  - LIVER FUNCTION TEST ABNORMAL [None]
